FAERS Safety Report 9845898 (Version 3)
Quarter: 2014Q3

REPORT INFORMATION
  Report Type: Spontaneous
  Country: US (occurrence: US)
  Receive Date: 20140127
  Receipt Date: 20140724
  Transmission Date: 20150326
  Serious: No
  Sender: FDA-Public Use
  Company Number: US-PFIZER INC-2014023293

PATIENT
  Age: 60 Year
  Sex: Female
  Weight: 62.13 kg

DRUGS (3)
  1. LYRICA [Suspect]
     Active Substance: PREGABALIN
     Dosage: 300 MG, 2X/DAY
     Route: 048
     Dates: start: 2014
  2. LYRICA [Suspect]
     Active Substance: PREGABALIN
     Indication: NERVE INJURY
     Dosage: 300 MG, 2X/DAY
     Route: 048
     Dates: end: 2014
  3. LORTAB [Concomitant]
     Active Substance: ACETAMINOPHEN\HYDROCODONE BITARTRATE
     Indication: NEURALGIA
     Dosage: UNK

REACTIONS (5)
  - Hot flush [Unknown]
  - Blood potassium decreased [Unknown]
  - Drug withdrawal syndrome [Unknown]
  - Influenza [Unknown]
  - Chills [Unknown]

NARRATIVE: CASE EVENT DATE: 2014
